FAERS Safety Report 6857163-8 (Version None)
Quarter: 2010Q3

REPORT INFORMATION
  Report Type: 
  Country: None (occurrence: None)
  Receive Date: 20100714
  Receipt Date: 20100705
  Transmission Date: 20110219
  Serious: Yes (Other)
  Sender: FDA-Public Use
  Company Number: GER/UKI/10/0014033

PATIENT
  Age: 51 Year
  Sex: Male
  Weight: 83 kg

DRUGS (3)
  1. TERBINAFINE HCL [Suspect]
     Indication: ONYCHOMYCOSIS
     Dosage: 250 MG, 1 IN 1 D, ORAL
     Route: 048
     Dates: start: 20100420, end: 20100501
  2. NEVIRAPINE [Concomitant]
  3. TRUVADA [Concomitant]

REACTIONS (1)
  - PANIC ATTACK [None]
